FAERS Safety Report 7519456-0 (Version None)
Quarter: 2011Q2

REPORT INFORMATION
  Report Type: 
  Country: None (occurrence: None)
  Receive Date: 20110602
  Receipt Date: 20110526
  Transmission Date: 20111010
  Serious: Yes (Hospitalization, Other)
  Sender: FDA-Public Use
  Company Number: US-AMGEN-USASP2011027615

PATIENT
  Sex: Female

DRUGS (2)
  1. XGEVA [Suspect]
     Dates: start: 20110518
  2. XGEVA [Suspect]
     Indication: PRODUCT USED FOR UNKNOWN INDICATION
     Dates: start: 20110518

REACTIONS (2)
  - THYROID CANCER [None]
  - HYPOCALCAEMIA [None]
